FAERS Safety Report 7700180-6 (Version None)
Quarter: 2011Q3

REPORT INFORMATION
  Report Type: 
  Country: None (occurrence: None)
  Receive Date: 20110822
  Receipt Date: 20110819
  Transmission Date: 20111222
  Serious: No
  Sender: FDA-Public Use
  Company Number: US-PFIZER INC-2011192503

PATIENT
  Sex: Female
  Weight: 74.8 kg

DRUGS (7)
  1. GABAPENTIN [Concomitant]
     Dosage: UNK
  2. FLONASE [Concomitant]
     Dosage: UNK
  3. ADVAIR DISKUS 100/50 [Concomitant]
     Dosage: UNK
  4. SINGULAIR [Concomitant]
     Dosage: UNK
  5. EFFEXOR [Suspect]
     Indication: HOT FLUSH
  6. TERIPARATIDE [Concomitant]
     Indication: OSTEOPOROSIS
     Dosage: UNK
  7. EFFEXOR [Suspect]
     Indication: DRY MOUTH
     Dosage: 75 MG, 1X/DAY
     Route: 048
     Dates: start: 20110701

REACTIONS (1)
  - WHITE BLOOD CELL COUNT DECREASED [None]
